FAERS Safety Report 6695892-X (Version None)
Quarter: 2010Q2

REPORT INFORMATION
  Report Type: 
  Country: None (occurrence: None)
  Receive Date: 20100426
  Receipt Date: 20090612
  Transmission Date: 20101027
  Serious: No
  Sender: FDA-Public Use
  Company Number: A0780785A

PATIENT
  Age: 73 Year
  Sex: Female
  Weight: 69.1 kg

DRUGS (4)
  1. ZOFRAN [Suspect]
     Indication: PROPHYLAXIS OF NAUSEA AND VOMITING
     Dosage: 8MG VARIABLE DOSE
     Route: 048
     Dates: start: 20090409, end: 20090412
  2. BLOOD PRESSURE MEDICATION [Concomitant]
  3. ANTI-CHOLESTEROL MEDICATION [Concomitant]
     Indication: BLOOD CHOLESTEROL INCREASED
  4. CHEMOTHERAPY [Concomitant]

REACTIONS (5)
  - CHEST PAIN [None]
  - DIZZINESS [None]
  - DYSPNOEA [None]
  - HEADACHE [None]
  - VOMITING [None]
